FAERS Safety Report 4644488-X (Version None)
Quarter: 2005Q2

REPORT INFORMATION
  Report Type: 
  Country: None (occurrence: None)
  Receive Date: 20050425
  Receipt Date: 20050425
  Transmission Date: 20051028
  Serious: Yes (Other)
  Sender: FDA-Public Use
  Company Number: None

PATIENT
  Sex: Female

DRUGS (1)
  1. FENTANYL [Suspect]
     Indication: PANCREATITIS CHRONIC
     Dosage: 75 MCG TO SKIN EVERY 72 HRS
     Dates: start: 20050401

REACTIONS (1)
  - RASH [None]
